FAERS Safety Report 17456018 (Version 1)
Quarter: 2020Q1

REPORT INFORMATION
  Report Type: Spontaneous
  Country: US (occurrence: US)
  Receive Date: 20200225
  Receipt Date: 20200225
  Transmission Date: 20200409
  Serious: Yes (Other)
  Sender: FDA-Public Use
  Company Number: None

PATIENT
  Sex: Female

DRUGS (1)
  1. XIIDRA [Suspect]
     Active Substance: LIFITEGRAST
     Route: 061
     Dates: start: 20191216, end: 20191221

REACTIONS (7)
  - Epistaxis [None]
  - Oropharyngeal pain [None]
  - Thermal burn [None]
  - Eye disorder [None]
  - Eyelid disorder [None]
  - Blister [None]
  - Hypogeusia [None]
